FAERS Safety Report 6571302-8 (Version None)
Quarter: 2010Q1

REPORT INFORMATION
  Report Type: 
  Country: None (occurrence: None)
  Receive Date: 20100129
  Receipt Date: 20100121
  Transmission Date: 20100710
  Serious: Yes (Life-Threatening, Other)
  Sender: FDA-Public Use
  Company Number: 2010AL000478

PATIENT
  Age: 37 Year
  Sex: Female

DRUGS (5)
  1. TRAMADOL HYDROCHLORIDE [Suspect]
     Indication: ARTHRALGIA
     Dosage: 100 MG;BID;PO
     Route: 048
     Dates: start: 20050404, end: 20050420
  2. GLUCOSAMINE [Concomitant]
  3. WARFARIN SODIUM [Concomitant]
  4. PERINDOPRIL [Concomitant]
  5. FUROSEMIDE [Concomitant]

REACTIONS (1)
  - INTERNATIONAL NORMALISED RATIO INCREASED [None]
